FAERS Safety Report 11992322 (Version 2)
Quarter: 2016Q1

REPORT INFORMATION
  Report Type: Spontaneous
  Country: US (occurrence: US)
  Receive Date: 20160203
  Receipt Date: 20160222
  Transmission Date: 20160526
  Serious: No
  Sender: FDA-Public Use
  Company Number: US-JNJFOC-20160106898

PATIENT
  Age: 76 Year
  Sex: Female
  Weight: 77.11 kg

DRUGS (4)
  1. TYLENOL PM EXTRA STRENGTH [Suspect]
     Active Substance: ACETAMINOPHEN\DIPHENHYDRAMINE HYDROCHLORIDE
     Indication: ARTHRALGIA
     Dosage: ONCE DAILY EVENING
     Route: 048
     Dates: start: 20150908
  2. TYLENOL EXTRA STRENGTH [Suspect]
     Active Substance: ACETAMINOPHEN
     Indication: PAIN IN EXTREMITY
     Dosage: ONCE DAILY MORNING
     Route: 048
     Dates: start: 20150908
  3. TYLENOL EXTRA STRENGTH [Suspect]
     Active Substance: ACETAMINOPHEN
     Indication: ARTHRALGIA
     Dosage: ONCE DAILY MORNING
     Route: 048
     Dates: start: 20150908
  4. TYLENOL PM EXTRA STRENGTH [Suspect]
     Active Substance: ACETAMINOPHEN\DIPHENHYDRAMINE HYDROCHLORIDE
     Indication: PAIN IN EXTREMITY
     Dosage: ONCE DAILY EVENING
     Route: 048
     Dates: start: 20150908

REACTIONS (1)
  - Drug administration error [Unknown]
